FAERS Safety Report 13119002 (Version 1)
Quarter: 2017Q1

REPORT INFORMATION
  Report Type: Spontaneous
  Country: US (occurrence: US)
  Receive Date: 20170116
  Receipt Date: 20170116
  Transmission Date: 20170428
  Serious: No
  Sender: FDA-Public Use
  Company Number: US-009507513-1701USA006811

PATIENT
  Age: 89 Year
  Sex: Female

DRUGS (2)
  1. KEYTRUDA [Suspect]
     Active Substance: PEMBROLIZUMAB
     Indication: GASTROINTESTINAL MELANOMA
     Dosage: UNK
     Dates: end: 201601
  2. KEYTRUDA [Suspect]
     Active Substance: PEMBROLIZUMAB
     Dosage: 2 MG/KG, EVERY THREE WEEKS
     Dates: start: 201603

REACTIONS (1)
  - Fatigue [Unknown]
